FAERS Safety Report 7070636-0 (Version None)
Quarter: 2010Q4

REPORT INFORMATION
  Report Type: 
  Country: None (occurrence: None)
  Receive Date: 20101027
  Receipt Date: 20101027
  Transmission Date: 20110411
  Serious: Yes (Other)
  Sender: FDA-Public Use
  Company Number: None

PATIENT
  Age: 2 Year
  Sex: Female
  Weight: 12.0657 kg

DRUGS (1)
  1. HIGHLANDS TEETHING TABLETS [Suspect]
     Indication: TEETHING
     Dosage: 3 4 TIMES DAY DENTAL
     Route: 004
     Dates: start: 20101001, end: 20101025

REACTIONS (3)
  - CONSTIPATION [None]
  - PRODUCT QUALITY ISSUE [None]
  - SOMNOLENCE [None]
